FAERS Safety Report 10168735 (Version 2)
Quarter: 2014Q2

REPORT INFORMATION
  Report Type: Spontaneous
  Country: US (occurrence: US)
  Receive Date: 20140513
  Receipt Date: 20140610
  Transmission Date: 20141212
  Serious: Yes (Other)
  Sender: FDA-Public Use
  Company Number: US-AMGEN-USASP2014033485

PATIENT
  Age: 29 Year
  Sex: Male
  Weight: 100.23 kg

DRUGS (2)
  1. NPLATE [Suspect]
     Indication: IMMUNE THROMBOCYTOPENIC PURPURA
     Dosage: 105 MUG, QWK (1 MCG/KG)
     Route: 058
     Dates: start: 20100610
  2. OCTAGAM [Concomitant]
     Dosage: 15 MG, UNK
     Route: 042

REACTIONS (2)
  - Hodgkin^s disease [Recovering/Resolving]
  - Haemolytic anaemia [Recovering/Resolving]
